FAERS Safety Report 25157824 (Version 1)
Quarter: 2025Q2

REPORT INFORMATION
  Report Type: Spontaneous
  Country: US (occurrence: US)
  Receive Date: 20250403
  Receipt Date: 20250403
  Transmission Date: 20250716
  Serious: No
  Sender: NEUROCRINE BIOSCIENCES
  Company Number: US-NEUROCRINE BIOSCIENCES INC.-2025NBI03193

PATIENT
  Sex: Female

DRUGS (4)
  1. INGREZZA [Suspect]
     Active Substance: VALBENAZINE
     Indication: Huntington^s disease
     Route: 065
  2. INGREZZA [Suspect]
     Active Substance: VALBENAZINE
     Route: 065
  3. INGREZZA [Suspect]
     Active Substance: VALBENAZINE
     Route: 065
  4. INGREZZA [Suspect]
     Active Substance: VALBENAZINE
     Route: 065

REACTIONS (2)
  - Drug effect less than expected [Unknown]
  - Prescribed overdose [Unknown]
